FAERS Safety Report 7718876-9 (Version None)
Quarter: 2011Q3

REPORT INFORMATION
  Report Type: 
  Country: None (occurrence: None)
  Receive Date: 20110830
  Receipt Date: 20110818
  Transmission Date: 20111222
  Serious: Yes (Hospitalization)
  Sender: FDA-Public Use
  Company Number: US-PFIZER INC-2011191344

PATIENT
  Sex: Male
  Weight: 73.46 kg

DRUGS (10)
  1. CALCIUM [Concomitant]
     Dosage: 2 DF, 2X/DAY
  2. VITAMIN B-12 [Concomitant]
     Dosage: UNK, MONTHLY
  3. CREON [Concomitant]
     Dosage: UNK
  4. LAMOTRIGINE [Concomitant]
     Dosage: UNK
  5. DIPHENOXYLATE HCL AND ATROPINE SULFATE [Concomitant]
     Dosage: UNK
  6. NEXIUM [Concomitant]
     Dosage: UNK
  7. PRISTIQ [Suspect]
     Indication: DEPRESSION
     Dosage: 50 MG, 1X/DAY
     Route: 048
     Dates: start: 20110401, end: 20110101
  8. PRISTIQ [Suspect]
     Dosage: 100 MG, 1X/DAY
     Dates: start: 20110101
  9. TESTOSTERONE [Concomitant]
     Dosage: EVERY TWO WEEKS
  10. CARBAMAZEPINE [Concomitant]
     Dosage: UNK

REACTIONS (4)
  - INSOMNIA [None]
  - NAUSEA [None]
  - DEVICE RELATED INFECTION [None]
  - TREMOR [None]
